FAERS Safety Report 13987436 (Version 2)
Quarter: 2018Q1

REPORT INFORMATION
  Report Type: Spontaneous
  Country: FR (occurrence: FR)
  Receive Date: 20170919
  Receipt Date: 20180206
  Transmission Date: 20180508
  Serious: Yes (Other)
  Sender: FDA-Public Use
  Company Number: FR-MERCK KGAA-2026804

PATIENT
  Age: 49 Year
  Sex: Female
  Weight: 94 kg

DRUGS (1)
  1. NOVOTHYROX [Suspect]
     Active Substance: LEVOTHYROXINE SODIUM
     Indication: THYROIDECTOMY
     Route: 048
     Dates: start: 2007, end: 201708

REACTIONS (15)
  - Musculoskeletal chest pain [Recovering/Resolving]
  - Amnesia [Recovering/Resolving]
  - Weight increased [Recovering/Resolving]
  - Product formulation issue [Recovered/Resolved]
  - Blood thyroid stimulating hormone normal [Recovered/Resolved]
  - Fatigue [Recovering/Resolving]
  - Pain [Recovering/Resolving]
  - Paraesthesia [Recovering/Resolving]
  - Rash macular [Recovering/Resolving]
  - Hyperhidrosis [Recovering/Resolving]
  - Headache [Recovering/Resolving]
  - Dyspnoea [Recovering/Resolving]
  - Language disorder [Recovering/Resolving]
  - Disturbance in attention [Recovering/Resolving]
  - Muscle spasms [Recovering/Resolving]

NARRATIVE: CASE EVENT DATE: 201705
